FAERS Safety Report 18955310 (Version 1)
Quarter: 2021Q1

REPORT INFORMATION
  Report Type: Spontaneous
  Country: US (occurrence: US)
  Receive Date: 20210301
  Receipt Date: 20210301
  Transmission Date: 20210420
  Serious: Yes (Death)
  Sender: FDA-Public Use
  Company Number: US-PFIZER INC-2021198584

PATIENT
  Age: 44 Year
  Sex: Male
  Weight: 150 kg

DRUGS (7)
  1. NOREPINEPHRINE BITARTRATE. [Suspect]
     Active Substance: NOREPINEPHRINE BITARTRATE
     Indication: SHOCK
     Dosage: UNK (INFUSION)
  2. GIAPREZA [Suspect]
     Active Substance: ANGIOTENSIN II
     Indication: SHOCK
     Dosage: UNK (INITIAL RATE OF 10 NG/KG/MIN CONTINUOUS INFUSION)
  3. HEPARIN SODIUM. [Suspect]
     Active Substance: HEPARIN SODIUM
     Indication: THROMBOSIS PROPHYLAXIS
     Dosage: 5000 IU, 3X/DAY (EVERY 8 HOURS)
     Route: 058
  4. HYDROCORTISONE. [Suspect]
     Active Substance: HYDROCORTISONE
     Indication: SHOCK
     Dosage: UNK (CONTINUOUS INFUSION)
     Route: 042
  5. VASOPRESSIN. [Suspect]
     Active Substance: VASOPRESSIN
     Indication: SHOCK
     Dosage: UNK (CONTINUOUS INFUSION)
  6. HEPARIN SODIUM. [Suspect]
     Active Substance: HEPARIN SODIUM
     Dosage: UNK (INFUSION)
     Route: 042
  7. EPINEPHRINE. [Suspect]
     Active Substance: EPINEPHRINE
     Indication: SHOCK
     Dosage: UNK (INFUSION)
     Route: 042

REACTIONS (2)
  - Drug ineffective [Fatal]
  - Venous thrombosis [Fatal]
